FAERS Safety Report 16377368 (Version 1)
Quarter: 2019Q3

REPORT INFORMATION
  Report Type: Spontaneous
  Country: US (occurrence: US)
  Receive Date: 20190530
  Receipt Date: 20190530
  Transmission Date: 20191004
  Serious: Yes (Other)
  Sender: FDA-Public Use
  Company Number: None

PATIENT
  Age: 71 Year
  Sex: Female

DRUGS (1)
  1. ISOSULFANE BLUE INJECTION [Suspect]
     Active Substance: ISOSULFAN BLUE
     Indication: BIOPSY BREAST
     Route: 058

REACTIONS (2)
  - Rash papular [None]
  - Skin discolouration [None]

NARRATIVE: CASE EVENT DATE: 20190530
